FAERS Safety Report 7059879-X (Version None)
Quarter: 2010Q4

REPORT INFORMATION
  Report Type: 
  Country: None (occurrence: None)
  Receive Date: 20101025
  Receipt Date: 20101020
  Transmission Date: 20110411
  Serious: Yes (Other)
  Sender: FDA-Public Use
  Company Number: US-WYE-H18274210

PATIENT
  Sex: Male
  Weight: 86.71 kg

DRUGS (6)
  1. PROTONIX [Suspect]
     Indication: GASTROOESOPHAGEAL REFLUX DISEASE
     Dosage: 40 MG AS NEEDED
     Route: 048
     Dates: start: 20080101, end: 20090101
  2. PROTONIX [Suspect]
     Route: 048
     Dates: start: 20090101
  3. XANAX [Concomitant]
     Dosage: 1 MG ,UNSPECIFIED FREQUENCY
  4. ASCORBIC ACID/ERGOCALCIFEROL/FOLIC ACID/NICOTINAMIDE/PANTHENOL/RETINOL [Concomitant]
     Dosage: UNKNOWN
  5. TOCOPHEROL CONCENTRATE CAP [Concomitant]
     Dosage: UNKNOWN
  6. FISH OIL [Concomitant]
     Dosage: UNKNOWN

REACTIONS (2)
  - DRUG SCREEN FALSE POSITIVE [None]
  - OESOPHAGEAL STENOSIS [None]
